FAERS Safety Report 10991256 (Version 2)
Quarter: 2015Q3

REPORT INFORMATION
  Report Type: Spontaneous
  Country: US (occurrence: US)
  Receive Date: 20150406
  Receipt Date: 20150708
  Transmission Date: 20151125
  Serious: Yes (Hospitalization)
  Sender: FDA-Public Use
  Company Number: US-BAYER-2015-114407

PATIENT
  Age: 26 Year
  Sex: Female

DRUGS (1)
  1. SKYLA [Suspect]
     Active Substance: LEVONORGESTREL
     Indication: ENDOMETRIOSIS
     Dosage: 12 ?G/D, CONT
     Route: 015
     Dates: start: 20150227, end: 20150327

REACTIONS (7)
  - Nausea [Not Recovered/Not Resolved]
  - Abdominal pain lower [None]
  - Decreased appetite [Not Recovered/Not Resolved]
  - Weight decreased [Not Recovered/Not Resolved]
  - Genital haemorrhage [Not Recovered/Not Resolved]
  - Procedural pain [None]
  - Off label use of device [None]

NARRATIVE: CASE EVENT DATE: 20150227
